FAERS Safety Report 7888217-5 (Version None)
Quarter: 2011Q4

REPORT INFORMATION
  Report Type: 
  Country: None (occurrence: None)
  Receive Date: 20111103
  Receipt Date: 20111031
  Transmission Date: 20120403
  Serious: Yes (Death, Hospitalization, Other)
  Sender: FDA-Public Use
  Company Number: US-TEVA-307390USA

PATIENT
  Age: 31 Year
  Sex: Female

DRUGS (2)
  1. ZONISAMIDE [Suspect]
     Indication: MIGRAINE
  2. BACTRIM [Suspect]
     Indication: RESPIRATORY TRACT INFECTION

REACTIONS (3)
  - DRUG RASH WITH EOSINOPHILIA AND SYSTEMIC SYMPTOMS [None]
  - DRUG HYPERSENSITIVITY [None]
  - MYOCARDITIS POST INFECTION [None]
